FAERS Safety Report 6365068-4 (Version None)
Quarter: 2009Q3

REPORT INFORMATION
  Report Type: 
  Country: None (occurrence: None)
  Receive Date: 20090919
  Receipt Date: 20090828
  Transmission Date: 20100115
  Serious: No
  Sender: FDA-Public Use
  Company Number: US-ABBOTT-09P-163-0589166-00

PATIENT
  Sex: Female
  Weight: 131.66 kg

DRUGS (20)
  1. HUMIRA [Suspect]
     Indication: ANKYLOSING SPONDYLITIS
     Dates: start: 20070430, end: 20090605
  2. HUMIRA [Suspect]
     Indication: CROHN'S DISEASE
  3. FENTANYL [Concomitant]
     Indication: PAIN
  4. SYNTHROID [Concomitant]
     Indication: HYPOTHYROIDISM
  5. PROVIGIL [Concomitant]
     Indication: FATIGUE
  6. PREDNISONE [Concomitant]
     Indication: ARTHRALGIA
  7. CALCITRIOL [Concomitant]
     Indication: MINERAL SUPPLEMENTATION
  8. CELEBREX [Concomitant]
     Indication: ARTHRALGIA
  9. LYRICA [Concomitant]
     Indication: PARAESTHESIA
  10. ASPIRIN [Concomitant]
     Indication: ANTIPHOSPHOLIPID SYNDROME
  11. CELEXA [Concomitant]
     Indication: DEPRESSION
  12. SEROQUEL [Concomitant]
     Indication: SLEEP DISORDER
  13. CYMBALTA [Concomitant]
     Indication: FIBROMYALGIA
  14. MIRAPEX [Concomitant]
     Indication: MIGRAINE
  15. TOPAMAX [Concomitant]
     Indication: MIGRAINE
  16. ACIPHEX [Concomitant]
     Indication: DYSPEPSIA
  17. FOSAMAX [Concomitant]
     Indication: BONE DISORDER
  18. FOSAMAX [Concomitant]
     Indication: PROPHYLAXIS
  19. FUROSEMIDE [Concomitant]
     Indication: OEDEMA
  20. ALBUTEROL [Concomitant]
     Indication: ASTHMA

REACTIONS (1)
  - DYSPNOEA [None]
